FAERS Safety Report 18678893 (Version 11)
Quarter: 2021Q3

REPORT INFORMATION
  Report Type: Report from Study
  Country: None (occurrence: FR)
  Receive Date: 20201230
  Receipt Date: 20210730
  Transmission Date: 20211014
  Serious: Yes (Hospitalization, Other)
  Sender: FDA-Public Use
  Company Number: FR-ABBVIE-20K-056-3708303-00

PATIENT
  Age: 61 Year
  Sex: Male
  Weight: 60 kg

DRUGS (12)
  1. COVID?19 VACCINE [Concomitant]
     Indication: COVID-19 IMMUNISATION
     Route: 030
     Dates: start: 2021, end: 2021
  2. DUODOPA [Suspect]
     Active Substance: CARBIDOPA\LEVODOPA
     Indication: PARKINSON^S DISEASE
     Dosage: MD:16ML, CONTINUOUS DOSE: FROM 7H?12H:5.6ML, FROM 12H?21H: 5.7ML
     Route: 050
     Dates: start: 202009, end: 20201129
  3. DUODOPA [Suspect]
     Active Substance: CARBIDOPA\LEVODOPA
     Dosage: MD:16ML, CONTINUOUS FLOW RATE DURING THE DAY: 5.8ML/H?FROM 7 AM TO 9 PM
     Route: 050
     Dates: start: 202101, end: 20210511
  4. CLOZAPINE. [Concomitant]
     Active Substance: CLOZAPINE
     Indication: PRODUCT USED FOR UNKNOWN INDICATION
     Dosage: 3/4 TABLET PER DAY
     Route: 048
  5. DUODOPA [Suspect]
     Active Substance: CARBIDOPA\LEVODOPA
     Dosage: MD:16ML, CONTINUOUS DOSE: FROM 7H?12H:5.6ML, FROM 12H?21H: 5.7ML
     Route: 050
     Dates: start: 20201130, end: 20201216
  6. ESCITALOPRAM [Concomitant]
     Active Substance: ESCITALOPRAM OXALATE
     Indication: PRODUCT USED FOR UNKNOWN INDICATION
     Route: 048
  7. COVID?19 VACCINE [Concomitant]
     Dosage: SECOND DOSE
     Route: 030
     Dates: start: 20210606, end: 20210606
  8. DUODOPA [Suspect]
     Active Substance: CARBIDOPA\LEVODOPA
     Dosage: MORNING DOSE: 17 ML.
     Route: 050
     Dates: start: 20210511
  9. NEUPRO [Concomitant]
     Active Substance: ROTIGOTINE
     Indication: PRODUCT USED FOR UNKNOWN INDICATION
     Route: 062
  10. MANTADIX [Concomitant]
     Active Substance: AMANTADINE HYDROCHLORIDE
     Indication: PARKINSON^S DISEASE
     Dosage: 1 ADDITIONAL TABLET AT NOON: 1/1/1?FREQUENCY 1 MORNING / 2 NOON/ 0 EVENING
  11. DUODOPA [Suspect]
     Active Substance: CARBIDOPA\LEVODOPA
     Dosage: MD:16ML, CONTINUOUS DOSE: FROM 7H?12H:5.6ML/H, FROM 12H?21H: 5.8ML/H
     Route: 050
     Dates: start: 20201217, end: 202101
  12. GUTRON [Concomitant]
     Active Substance: MIDODRINE HYDROCHLORIDE
     Indication: PRODUCT USED FOR UNKNOWN INDICATION
     Route: 048

REACTIONS (28)
  - Therapeutic product effect decreased [Not Recovered/Not Resolved]
  - Drug ineffective [Not Recovered/Not Resolved]
  - Stoma site odour [Unknown]
  - Parkinson^s disease [Unknown]
  - Gait inability [Unknown]
  - Hypophagia [Unknown]
  - Device issue [Unknown]
  - Fall [Unknown]
  - Fracture [Unknown]
  - Restlessness [Not Recovered/Not Resolved]
  - On and off phenomenon [Unknown]
  - General physical health deterioration [Unknown]
  - Musculoskeletal chest pain [Unknown]
  - Balance disorder [Not Recovered/Not Resolved]
  - Pyrexia [Unknown]
  - Pleurisy [Unknown]
  - Asthenia [Not Recovered/Not Resolved]
  - Hypotonia [Not Recovered/Not Resolved]
  - Apathy [Unknown]
  - Hypophagia [Unknown]
  - Lower respiratory tract congestion [Unknown]
  - Speech disorder [Not Recovered/Not Resolved]
  - Hypersomnia [Unknown]
  - Incorrect route of product administration [Unknown]
  - Fall [Recovered/Resolved]
  - Weight decreased [Not Recovered/Not Resolved]
  - Mobility decreased [Unknown]
  - Asthenia [Unknown]

NARRATIVE: CASE EVENT DATE: 202011
